FAERS Safety Report 6760836-9 (Version None)
Quarter: 2010Q2

REPORT INFORMATION
  Report Type: 
  Country: None (occurrence: None)
  Receive Date: 20100604
  Receipt Date: 20100519
  Transmission Date: 20101027
  Serious: Yes (Other)
  Sender: FDA-Public Use
  Company Number: LMI-2010-00433

PATIENT
  Sex: Female

DRUGS (2)
  1. DEFINITY [Suspect]
     Indication: STRESS ECHOCARDIOGRAM
     Dosage: 1.5 ML OF DEFINITE DILUTED WITH 1.5 ML OF NORMAL SALINE (0.5 ML), INTRAVENOUS
     Route: 042
     Dates: start: 20100518, end: 20100518
  2. DEFINITY [Suspect]
     Indication: STRESS ECHOCARDIOGRAM
     Dosage: 1.5 ML OF DEFINITE DILUTED WITH 1.5 ML OF NORMAL SALINE (0.5 ML), INTRAVENOUS
     Route: 042
     Dates: start: 20100518, end: 20100518

REACTIONS (3)
  - ANGIOEDEMA [None]
  - PRURITUS [None]
  - THROAT IRRITATION [None]
